FAERS Safety Report 8154348-8 (Version None)
Quarter: 2012Q1

REPORT INFORMATION
  Report Type: 
  Country: None (occurrence: None)
  Receive Date: 20120217
  Receipt Date: 20120217
  Transmission Date: 20120608
  Serious: Yes (Hospitalization)
  Sender: FDA-Public Use
  Company Number: None

PATIENT
  Sex: Female
  Weight: 102 kg

DRUGS (3)
  1. TAXOL [Suspect]
     Dosage: 383 MG
     Dates: end: 20120131
  2. LISINOPRIL [Concomitant]
  3. MORPHINE [Concomitant]

REACTIONS (4)
  - RENAL FAILURE ACUTE [None]
  - URINARY TRACT INFECTION [None]
  - DEHYDRATION [None]
  - HYPOPHAGIA [None]
